FAERS Safety Report 4954662-0 (Version None)
Quarter: 2006Q1

REPORT INFORMATION
  Report Type: 
  Country: None (occurrence: None)
  Receive Date: 20060322
  Receipt Date: 20060316
  Transmission Date: 20060701
  Serious: Yes (Disabling, Other)
  Sender: FDA-Public Use
  Company Number: 200514227GDS

PATIENT
  Sex: Female

DRUGS (2)
  1. AVELOX [Suspect]
     Indication: PLEURISY
     Dosage: 400 MG, QD, INTRAVENOUS
     Route: 025
     Dates: start: 20050601
  2. AVELOX [Suspect]
     Indication: PLEURISY
     Dosage: 400 MG, QD, ORAL
     Route: 048
     Dates: start: 20050601

REACTIONS (7)
  - ARRHYTHMIA [None]
  - ARTHRITIS REACTIVE [None]
  - CHLAMYDIA SEROLOGY POSITIVE [None]
  - EXTRASYSTOLES [None]
  - IMPAIRED WORK ABILITY [None]
  - PAIN [None]
  - TENDINOUS CONTRACTURE [None]
